FAERS Safety Report 18359030 (Version 5)
Quarter: 2020Q4

REPORT INFORMATION
  Report Type: Spontaneous
  Country: JP (occurrence: JP)
  Receive Date: 20201008
  Receipt Date: 20201230
  Transmission Date: 20210114
  Serious: Yes (Life-Threatening, Disabling, Other)
  Sender: FDA-Public Use
  Company Number: JP-B.I. PHARMACEUTICALS,INC./RIDGEFIELD-2020-BI-053646

PATIENT
  Age: 80 Year
  Sex: Male

DRUGS (1)
  1. PRAZAXA [Suspect]
     Active Substance: DABIGATRAN ETEXILATE MESYLATE
     Indication: PRODUCT USED FOR UNKNOWN INDICATION
     Route: 048
     Dates: end: 20200922

REACTIONS (3)
  - Therapeutic product effect incomplete [Unknown]
  - Cerebral infarction [Recovered/Resolved with Sequelae]
  - Haemorrhage [Unknown]

NARRATIVE: CASE EVENT DATE: 20200922
